FAERS Safety Report 21545953 (Version 5)
Quarter: 2023Q1

REPORT INFORMATION
  Report Type: Spontaneous
  Country: FR (occurrence: FR)
  Receive Date: 20221103
  Receipt Date: 20230117
  Transmission Date: 20230418
  Serious: Yes (Other)
  Sender: FDA-Public Use
  Company Number: FR-ORGANON-O2210FRA002425

PATIENT
  Age: 35 Year
  Sex: Female
  Weight: 58 kg

DRUGS (3)
  1. NEXPLANON [Suspect]
     Active Substance: ETONOGESTREL
     Indication: Contraception
     Dosage: 1 IMPLANT IN LEFT ARM
     Dates: start: 20190705
  2. NEXPLANON [Suspect]
     Active Substance: ETONOGESTREL
     Indication: Contraception
     Dosage: 1 IMPLANT IN LEFT ARM
     Route: 059
     Dates: start: 20160511, end: 20190705
  3. NEXPLANON [Suspect]
     Active Substance: ETONOGESTREL
     Dosage: 1 IMPLANT
     Dates: start: 2022

REACTIONS (7)
  - Device issue [Not Recovered/Not Resolved]
  - Device placement issue [Not Recovered/Not Resolved]
  - Device placement issue [Not Recovered/Not Resolved]
  - Complication associated with device [Recovered/Resolved]
  - Overdose [Unknown]
  - Device use error [Unknown]
  - Incorrect product administration duration [Unknown]

NARRATIVE: CASE EVENT DATE: 20190511
